FAERS Safety Report 4509652-9 (Version None)
Quarter: 2004Q4

REPORT INFORMATION
  Report Type: 
  Country: None (occurrence: None)
  Receive Date: 20041124
  Receipt Date: 20041116
  Transmission Date: 20050328
  Serious: Yes (Other)
  Sender: FDA-Public Use
  Company Number: 200418866US

PATIENT
  Age: 27 Year
  Sex: Male

DRUGS (1)
  1. KETEK [Suspect]
     Indication: SINUSITIS
     Dosage: DOSE: UNK

REACTIONS (5)
  - FATIGUE [None]
  - GLOMERULONEPHRITIS [None]
  - HAEMATURIA [None]
  - MYALGIA [None]
  - NEPHRITIS INTERSTITIAL [None]
